FAERS Safety Report 22005031 (Version 1)
Quarter: 2023Q1

REPORT INFORMATION
  Report Type: Spontaneous
  Country: MX (occurrence: MX)
  Receive Date: 20230217
  Receipt Date: 20230217
  Transmission Date: 20230417
  Serious: Yes (Death, Hospitalization)
  Sender: FDA-Public Use
  Company Number: MX-STERISCIENCE B.V.-2023-ST-000668

PATIENT
  Age: 20 Year
  Sex: Female

DRUGS (12)
  1. ONDANSETRON [Interacting]
     Active Substance: ONDANSETRON
     Indication: Nausea
     Dosage: 4 MILLIGRAM
     Route: 042
  2. LIDOCAINE [Suspect]
     Active Substance: LIDOCAINE
     Indication: Cardiac arrest
     Dosage: UNK
     Route: 065
  3. CRATAEGUS [Interacting]
     Active Substance: HAWTHORN LEAF WITH FLOWER
     Indication: Suicidal behaviour
     Dosage: PILLS
     Route: 048
  4. AMITRIPTYLINE [Interacting]
     Active Substance: AMITRIPTYLINE
     Indication: Depression
     Dosage: UNK
     Route: 065
  5. CLOZAPINE [Interacting]
     Active Substance: CLOZAPINE
     Indication: Depression
     Dosage: UNK
     Route: 065
  6. OMEPRAZOLE [Interacting]
     Active Substance: OMEPRAZOLE
     Indication: Nausea
     Dosage: 20 MILLIGRAM
     Route: 042
  7. ATROPINE [Concomitant]
     Active Substance: ATROPINE
     Indication: Hypotension
     Dosage: 1 MILLIGRAM
     Route: 042
  8. ATROPINE [Concomitant]
     Active Substance: ATROPINE
     Indication: Bradycardia
  9. DOPAMINE [Concomitant]
     Active Substance: DOPAMINE HYDROCHLORIDE
     Indication: Bradycardia
     Dosage: 400 MG OF DOPAMINE IN 250 ML OF 5% GLUCOSE, WAS INITIALLY ADMINISTERED AT A RATE OF 5MICROG/KG/MIN A
     Route: 065
  10. DOPAMINE [Concomitant]
     Active Substance: DOPAMINE HYDROCHLORIDE
     Indication: Hypotension
  11. DEXTROSE [Concomitant]
     Active Substance: DEXTROSE
     Indication: Vehicle solution use
     Dosage: 400 MG OF DOPAMINE IN 250 ML OF 5% GLUCOSE, WAS INITIALLY ADMINISTERED
     Route: 065
  12. ALPRAZOLAM [Concomitant]
     Active Substance: ALPRAZOLAM
     Indication: Depression
     Dosage: UNK
     Route: 065

REACTIONS (2)
  - Drug interaction [Fatal]
  - Drug ineffective [Unknown]
